FAERS Safety Report 4498762-0 (Version None)
Quarter: 2004Q4

REPORT INFORMATION
  Report Type: 
  Country: None (occurrence: None)
  Receive Date: 20041108
  Receipt Date: 20041021
  Transmission Date: 20050328
  Serious: Yes (Hospitalization)
  Sender: FDA-Public Use
  Company Number: 204313

PATIENT
  Age: 44 Year
  Sex: Female
  Weight: 81.6475 kg

DRUGS (9)
  1. AVONEX [Suspect]
     Indication: MULTIPLE SCLEROSIS
     Dosage: 30 MCG QW IM
     Route: 030
     Dates: start: 20040326
  2. MULTI-VITAMINS [Concomitant]
  3. OXYBUTYNIN [Concomitant]
  4. DOCUSATE SODIUM [Concomitant]
  5. TYLENOL [Concomitant]
  6. QUETIAPINE FUMARATE [Concomitant]
  7. DICLOFENAC [Concomitant]
  8. PREVACID [Concomitant]
  9. LIQUID TEARS [Concomitant]

REACTIONS (23)
  - AMNESIA [None]
  - ANXIETY [None]
  - ARTHRITIS [None]
  - BLOOD CHOLESTEROL INCREASED [None]
  - BLOOD PRESSURE INCREASED [None]
  - CORONARY ARTERY OCCLUSION [None]
  - COUGH [None]
  - DEAFNESS [None]
  - DEPRESSION [None]
  - FALL [None]
  - FATIGUE [None]
  - HALLUCINATION, VISUAL [None]
  - HEART VALVE STENOSIS [None]
  - INFLUENZA LIKE ILLNESS [None]
  - INSOMNIA [None]
  - LUNG DISORDER [None]
  - MUSCULAR WEAKNESS [None]
  - MUSCULOSKELETAL STIFFNESS [None]
  - MYOCARDIAL INFARCTION [None]
  - PAIN IN EXTREMITY [None]
  - URINARY TRACT INFECTION [None]
  - WEIGHT INCREASED [None]
  - WHITE BLOOD CELL COUNT INCREASED [None]
